FAERS Safety Report 10451020 (Version 2)
Quarter: 2014Q3

REPORT INFORMATION
  Report Type: Report from Study
  Country: CA (occurrence: CA)
  Receive Date: 20140912
  Receipt Date: 20140912
  Transmission Date: 20150326
  Serious: Yes (Other)
  Sender: FDA-Public Use
  Company Number: CA-BAYER-2014-082253

PATIENT
  Age: 48 Year
  Sex: Female

DRUGS (3)
  1. STIVARGA [Suspect]
     Active Substance: REGORAFENIB
     Indication: COLORECTAL CANCER METASTATIC
     Dosage: 160 MG, QD
     Route: 048
     Dates: start: 20140521, end: 20140606
  2. STIVARGA [Suspect]
     Active Substance: REGORAFENIB
     Indication: COLORECTAL CANCER METASTATIC
     Dosage: 80 MG, QD
     Route: 048
     Dates: start: 20140708, end: 20140820
  3. FENTANYL. [Concomitant]
     Active Substance: FENTANYL
     Dosage: Q3 DAYS

REACTIONS (9)
  - Erythema [Not Recovered/Not Resolved]
  - Pain in extremity [Not Recovered/Not Resolved]
  - Peripheral swelling [Not Recovered/Not Resolved]
  - Hyperaesthesia [Not Recovered/Not Resolved]
  - Skin exfoliation [Unknown]
  - Decreased appetite [None]
  - Acne [Not Recovered/Not Resolved]
  - Abasia [None]
  - Fatigue [Unknown]

NARRATIVE: CASE EVENT DATE: 201405
